FAERS Safety Report 4824181-0 (Version None)
Quarter: 2005Q4

REPORT INFORMATION
  Report Type: 
  Country: None (occurrence: None)
  Receive Date: 20051108
  Receipt Date: 20051025
  Transmission Date: 20060501
  Serious: Yes (Hospitalization, Other)
  Sender: FDA-Public Use
  Company Number: USA0507103464

PATIENT
  Age: 83 Year
  Sex: Female
  Weight: 56 kg

DRUGS (13)
  1. FORTEO [Suspect]
     Indication: OSTEOPOROSIS
     Dosage: 20 UG DAY
     Dates: start: 20050620
  2. CYMBALTA [Suspect]
     Indication: ANXIETY
     Dosage: 60 MG DAY
  3. CRESTOR [Concomitant]
  4. CALCIUM GLUCONATE [Concomitant]
  5. VITAMIN D [Concomitant]
  6. HYDROCODONE [Concomitant]
  7. ACETAMINOPHEN [Concomitant]
  8. LEVOXYL [Concomitant]
  9. OXYTROL [Concomitant]
  10. SPIRIVA [Concomitant]
  11. TIAZAC [Concomitant]
  12. ZANTAC (RANITDINE HYDROCHLORIDE) [Concomitant]
  13. ZESTRIL [Concomitant]

REACTIONS (12)
  - ABDOMINAL PAIN [None]
  - ANXIETY [None]
  - BACK PAIN [None]
  - COMPRESSION FRACTURE [None]
  - COUGH [None]
  - FALL [None]
  - NERVOUSNESS [None]
  - PHARMACEUTICAL PRODUCT COMPLAINT [None]
  - RECTAL HAEMORRHAGE [None]
  - RECTAL ULCER [None]
  - THROMBOSIS [None]
  - TREMOR [None]
